FAERS Safety Report 10018742 (Version 1)
Quarter: 2014Q1

REPORT INFORMATION
  Report Type: Spontaneous
  Country: JP (occurrence: JP)
  Receive Date: 20140318
  Receipt Date: 20140318
  Transmission Date: 20141002
  Serious: Yes (Hospitalization)
  Sender: FDA-Public Use
  Company Number: JP-TEVA-468767ISR

PATIENT
  Age: 73 Year
  Sex: Male

DRUGS (4)
  1. PREDNISOLONE [Suspect]
     Indication: NEPHROTIC SYNDROME
     Dosage: 40 MILLIGRAM DAILY;
     Route: 065
     Dates: start: 200908, end: 201110
  2. PREDNISOLONE [Suspect]
     Dosage: 20 MILLIGRAM DAILY;
  3. CICLOSPORIN [Concomitant]
     Indication: NEPHROTIC SYNDROME
     Dosage: 100 MILLIGRAM DAILY; 100 MG/DAY; DECREASED TO 50MG
     Route: 065
     Dates: start: 200908, end: 201001
  4. CICLOSPORIN [Concomitant]
     Dosage: 50 MILLIGRAM DAILY; 50MG
     Route: 065
     Dates: start: 200908, end: 201001

REACTIONS (6)
  - Central obesity [Unknown]
  - Cushingoid [Unknown]
  - Respiratory failure [Recovering/Resolving]
  - Oesophageal squamous cell carcinoma stage II [Unknown]
  - Oedema [Unknown]
  - Hypoaesthesia [Unknown]
